FAERS Safety Report 25560893 (Version 1)
Quarter: 2025Q3

REPORT INFORMATION
  Report Type: Spontaneous
  Country: US (occurrence: US)
  Receive Date: 20250715
  Receipt Date: 20250715
  Transmission Date: 20251020
  Serious: Yes (Other)
  Sender: NOVO NORDISK
  Company Number: US-NOVOPROD-1402364

PATIENT
  Age: 57 Year
  Sex: Female

DRUGS (1)
  1. OZEMPIC [Suspect]
     Active Substance: SEMAGLUTIDE
     Indication: Type 2 diabetes mellitus
     Dates: start: 201901, end: 202306

REACTIONS (13)
  - Impaired gastric emptying [Unknown]
  - Gastrointestinal disorder [Not Recovered/Not Resolved]
  - Dysphagia [Unknown]
  - Regurgitation [Unknown]
  - Ill-defined disorder [Unknown]
  - Functional gastrointestinal disorder [Unknown]
  - Early satiety [Unknown]
  - Gastrooesophageal reflux disease [Unknown]
  - Abdominal pain [Unknown]
  - Abdominal distension [Unknown]
  - Constipation [Not Recovered/Not Resolved]
  - Dyspepsia [Unknown]
  - Nausea [Unknown]
